FAERS Safety Report 8059603-8 (Version None)
Quarter: 2012Q1

REPORT INFORMATION
  Report Type: 
  Country: None (occurrence: None)
  Receive Date: 20120120
  Receipt Date: 20120113
  Transmission Date: 20120608
  Serious: Yes (Other)
  Sender: FDA-Public Use
  Company Number: PHEH2012US001356

PATIENT
  Sex: Female

DRUGS (4)
  1. IBUPROFEN [Concomitant]
     Dosage: UNK UKN, UNK
  2. NEURONTIN [Concomitant]
     Dosage: UNK UKN, UNK
  3. GILENYA [Suspect]
     Dosage: 0.25 MG, QD
  4. CYMBALTA [Concomitant]
     Dosage: UNK UKN, UNK

REACTIONS (2)
  - INCORRECT DOSE ADMINISTERED [None]
  - CENTRAL NERVOUS SYSTEM LESION [None]
